FAERS Safety Report 6259985-3 (Version None)
Quarter: 2009Q3

REPORT INFORMATION
  Report Type: 
  Country: None (occurrence: None)
  Receive Date: 20090708
  Receipt Date: 20090629
  Transmission Date: 20100115
  Serious: Yes (Life-Threatening)
  Sender: FDA-Public Use
  Company Number: US-PFIZER INC-2009227624

PATIENT
  Sex: Female
  Weight: 90.703 kg

DRUGS (8)
  1. XANAX [Suspect]
     Dosage: 1 MG, 2X/DAY
     Dates: start: 20080101
  2. LYRICA [Suspect]
     Dosage: 100 MG, 1X/DAY
     Dates: start: 20090407
  3. CYCLOBENZAPRINE [Suspect]
     Indication: RHEUMATOID ARTHRITIS
     Dosage: 15 MG, 1X/DAY
     Route: 048
     Dates: start: 20090429, end: 20090429
  4. AMITRIPTYLINE [Suspect]
     Dosage: 50 MG, 1X/DAY
     Route: 065
     Dates: start: 20080101
  5. LORCET-HD [Suspect]
     Dosage: 10 MG, AS NEEDED
     Dates: start: 20080101
  6. SOMA [Suspect]
     Dates: start: 20050101
  7. ATENOLOL [Concomitant]
     Dosage: 50 MG, 2X/DAY
     Dates: start: 20060101
  8. HYDROCHLOROTHIAZIDE [Concomitant]
     Dosage: 50 MG, 1X/DAY
     Dates: start: 20060101

REACTIONS (7)
  - DRUG TOXICITY [None]
  - DYSPNOEA [None]
  - MEMORY IMPAIRMENT [None]
  - SOMNOLENCE [None]
  - URINARY INCONTINENCE [None]
  - URINARY RETENTION [None]
  - VOMITING [None]
